FAERS Safety Report 7851854-8 (Version None)
Quarter: 2011Q4

REPORT INFORMATION
  Report Type: 
  Country: None (occurrence: None)
  Receive Date: 20111026
  Receipt Date: 20111017
  Transmission Date: 20120403
  Serious: Yes (Other)
  Sender: FDA-Public Use
  Company Number: IT-NOVOPROD-337647

PATIENT

DRUGS (9)
  1. DOXAZOSINA [Concomitant]
  2. DICLOFENAC POTASSIUM [Concomitant]
  3. FLUVASTATINA [Concomitant]
  4. METFORMIN HCL [Concomitant]
     Dosage: 1.5 G, QD
     Route: 048
  5. VICTOZA [Suspect]
     Indication: PRODUCT USED FOR UNKNOWN INDICATION
     Dosage: UNK
     Route: 058
     Dates: start: 20110601, end: 20110613
  6. LORAZEPAM [Concomitant]
  7. ASPIRIN [Concomitant]
  8. AMLODIPINA                         /00972401/ [Concomitant]
  9. CANDESARTAN CILEXETIL AND HYDROCHLOROTHIAZIDE [Concomitant]

REACTIONS (3)
  - MALAISE [None]
  - CHEST PAIN [None]
  - PALPITATIONS [None]
